FAERS Safety Report 7541062-2 (Version None)
Quarter: 2011Q2

REPORT INFORMATION
  Report Type: 
  Country: None (occurrence: None)
  Receive Date: 20110610
  Receipt Date: 20110602
  Transmission Date: 20111010
  Serious: Yes (Hospitalization)
  Sender: FDA-Public Use
  Company Number: PHHO2011US08832

PATIENT
  Sex: Female
  Weight: 57 kg

DRUGS (3)
  1. TACROLIMUS [Suspect]
  2. CERTICAN [Suspect]
     Indication: RENAL TRANSPLANT
     Dosage: 0.75 MG, BID
     Route: 048
     Dates: start: 20101121, end: 20101130
  3. CERTICAN [Suspect]
     Dosage: 1.5 MG, BID
     Route: 048
     Dates: start: 20101201

REACTIONS (6)
  - BACTERAEMIA [None]
  - HYPONATRAEMIA [None]
  - THROMBOCYTOPENIA [None]
  - LEUKOCYTOSIS [None]
  - RENAL FAILURE ACUTE [None]
  - PEPTIC ULCER [None]
